FAERS Safety Report 12072129 (Version 1)
Quarter: 2016Q1

REPORT INFORMATION
  Report Type: Spontaneous
  Country: DZ (occurrence: DZ)
  Receive Date: 20160212
  Receipt Date: 20160212
  Transmission Date: 20160526
  Serious: Yes (Hospitalization, Other)
  Sender: FDA-Public Use
  Company Number: DZ-BIOVITRUM-2016DZ0069

PATIENT
  Sex: Female

DRUGS (1)
  1. ORFADIN [Suspect]
     Active Substance: NITISINONE
     Indication: TYROSINAEMIA
     Route: 048
     Dates: end: 201512

REACTIONS (3)
  - Hepatic neoplasm [Recovered/Resolved]
  - Alpha 1 foetoprotein increased [Recovered/Resolved]
  - Liver transplant [Recovered/Resolved]
